FAERS Safety Report 13388745 (Version 1)
Quarter: 2017Q1

REPORT INFORMATION
  Report Type: Report from Study
  Country: AU (occurrence: AU)
  Receive Date: 20170331
  Receipt Date: 20170331
  Transmission Date: 20170429
  Serious: Yes (Other)
  Sender: FDA-Public Use
  Company Number: PHHY2017AU042058

PATIENT
  Sex: Male

DRUGS (1)
  1. COSENTYX [Suspect]
     Active Substance: SECUKINUMAB
     Indication: PSORIASIS
     Dosage: 300 MG, QMO
     Route: 058
     Dates: start: 20161219

REACTIONS (6)
  - Cough [Unknown]
  - Neoplasm malignant [Unknown]
  - Confusional state [Unknown]
  - Sputum discoloured [Unknown]
  - Fatigue [Unknown]
  - Depression [Unknown]
